FAERS Safety Report 6758005-1 (Version None)
Quarter: 2010Q2

REPORT INFORMATION
  Report Type: 
  Country: None (occurrence: None)
  Receive Date: 20100607
  Receipt Date: 20100531
  Transmission Date: 20101027
  Serious: Yes (Hospitalization)
  Sender: FDA-Public Use
  Company Number: PHHO2010DE08199

PATIENT
  Sex: Male
  Weight: 93 kg

DRUGS (3)
  1. STI571/CGP57148B T35717+CAPS [Suspect]
     Indication: CHRONIC MYELOID LEUKAEMIA
     Dosage: 400MG DAILY
     Route: 048
     Dates: start: 20070224
  2. PEGASYS [Suspect]
     Indication: CHRONIC MYELOID LEUKAEMIA
     Dosage: 135MG WEEKLY
     Route: 058
     Dates: start: 20070320
  3. ENALAPRIL [Concomitant]
     Indication: HYPERTENSION

REACTIONS (4)
  - ARTHRITIS BACTERIAL [None]
  - EMPYEMA [None]
  - METATARSAL EXCISION [None]
  - TOE AMPUTATION [None]
